FAERS Safety Report 7013999-4 (Version None)
Quarter: 2010Q3

REPORT INFORMATION
  Report Type: 
  Country: None (occurrence: None)
  Receive Date: 20100927
  Receipt Date: 20100609
  Transmission Date: 20110219
  Serious: Yes (Life-Threatening, Hospitalization)
  Sender: FDA-Public Use
  Company Number: GB-RANBAXY-2010RR-33598

PATIENT
  Sex: Female

DRUGS (7)
  1. FLUOXETINE [Suspect]
     Indication: DEPRESSED MOOD
     Dosage: 20 MG, UNK
     Route: 048
     Dates: start: 20100321, end: 20100326
  2. BENDROFLUAZIDE [Concomitant]
     Route: 065
  3. CANDESARTAN CILEXETIL [Concomitant]
     Route: 065
  4. CO-DYDRAMOL [Concomitant]
     Route: 065
  5. FRUSEMIDE [Concomitant]
     Route: 065
  6. TRIMETHOPRIM [Concomitant]
     Route: 065
  7. ANTIBIOTICS NOS [Suspect]
     Route: 065

REACTIONS (4)
  - DEHYDRATION [None]
  - HEPATIC STEATOSIS [None]
  - MALAISE [None]
  - VOMITING [None]
